FAERS Safety Report 14448960 (Version 1)
Quarter: 2018Q1

REPORT INFORMATION
  Report Type: Spontaneous
  Country: IT (occurrence: IT)
  Receive Date: 20180126
  Receipt Date: 20180126
  Transmission Date: 20180509
  Serious: Yes (Hospitalization)
  Sender: FDA-Public Use
  Company Number: IT-OTSUKA-DJ201307705

PATIENT

DRUGS (1)
  1. ABILIFY [Suspect]
     Active Substance: ARIPIPRAZOLE
     Indication: AUTISM SPECTRUM DISORDER
     Route: 048
     Dates: start: 20130618, end: 20130705

REACTIONS (6)
  - Dyskinesia [Recovered/Resolved]
  - Staring [Recovered/Resolved]
  - Dystonia [Recovered/Resolved]
  - Psychomotor hyperactivity [Recovered/Resolved]
  - Sinus tachycardia [Recovered/Resolved]
  - Off label use [Unknown]

NARRATIVE: CASE EVENT DATE: 20130705
